FAERS Safety Report 4499247-8 (Version None)
Quarter: 2004Q4

REPORT INFORMATION
  Report Type: 
  Country: None (occurrence: None)
  Receive Date: 20041111
  Receipt Date: 20041104
  Transmission Date: 20050328
  Serious: Yes (Hospitalization)
  Sender: FDA-Public Use
  Company Number: US-BRISTOL-MYERS SQUIBB COMPANY-12757621

PATIENT
  Sex: Female

DRUGS (1)
  1. SERZONE [Suspect]
     Route: 048

REACTIONS (4)
  - ALANINE AMINOTRANSFERASE INCREASED [None]
  - ASPARTATE AMINOTRANSFERASE INCREASED [None]
  - CHRONIC OBSTRUCTIVE AIRWAYS DISEASE [None]
  - HEPATIC ENZYME INCREASED [None]
